FAERS Safety Report 7289614-1 (Version None)
Quarter: 2011Q1

REPORT INFORMATION
  Report Type: 
  Country: None (occurrence: None)
  Receive Date: 20110214
  Receipt Date: 20110203
  Transmission Date: 20110831
  Serious: Yes (Hospitalization)
  Sender: FDA-Public Use
  Company Number: US-BIOGENIDEC-2010BI003694

PATIENT
  Age: 48 Year
  Sex: Male
  Weight: 129 kg

DRUGS (9)
  1. VICODIN [Concomitant]
  2. ALLEGRA [Concomitant]
     Dates: start: 20090601
  3. MULTI-VITAMINS [Concomitant]
  4. CARDURA [Concomitant]
     Route: 048
     Dates: start: 20010501, end: 20091218
  5. NUVIGIL [Concomitant]
     Route: 048
     Dates: start: 20090601
  6. MIRALAX [Concomitant]
     Route: 048
     Dates: start: 20090101
  7. TYSABRI [Suspect]
     Indication: MULTIPLE SCLEROSIS
     Route: 042
     Dates: start: 20090213
  8. MOBIC [Concomitant]
     Route: 048
     Dates: start: 20000101
  9. NORTRIPTYLINE [Concomitant]
     Route: 048
     Dates: start: 20010201

REACTIONS (2)
  - GASTROINTESTINAL INJURY [None]
  - SYNCOPE [None]
